FAERS Safety Report 8210054-2 (Version None)
Quarter: 2012Q1

REPORT INFORMATION
  Report Type: 
  Country: None (occurrence: None)
  Receive Date: 20120314
  Receipt Date: 20110919
  Transmission Date: 20120608
  Serious: No
  Sender: FDA-Public Use
  Company Number: US-ASTRAZENECA-2011SE55219

PATIENT
  Age: 59 Year
  Sex: Female

DRUGS (5)
  1. TOPROL-XL [Suspect]
     Route: 048
  2. TOPROL-XL [Suspect]
     Route: 048
  3. ATACAND HCTZ [Concomitant]
  4. NEXIUM [Concomitant]
  5. CRESTOR [Concomitant]

REACTIONS (2)
  - CHEST PAIN [None]
  - CARDIAC DISORDER [None]
